FAERS Safety Report 21572464 (Version 1)
Quarter: 2022Q4

REPORT INFORMATION
  Report Type: Spontaneous
  Country: US (occurrence: None)
  Receive Date: 20221108
  Receipt Date: 20221108
  Transmission Date: 20230112
  Serious: Yes (Life-Threatening)
  Sender: FDA-Public Use
  Company Number: None

PATIENT
  Age: 75 Year
  Sex: Male
  Weight: 119.1 kg

DRUGS (1)
  1. ALTEPLASE [Suspect]
     Active Substance: ALTEPLASE
     Indication: Ischaemic stroke
     Dosage: FREQUENCY : ONCE;?
     Route: 042
     Dates: start: 20221106, end: 20221106

REACTIONS (10)
  - Cerebrovascular accident [None]
  - Mental status changes [None]
  - Speech disorder [None]
  - Cerebral mass effect [None]
  - Subarachnoid haemorrhage [None]
  - Cerebral infarction [None]
  - Cerebral artery occlusion [None]
  - Cerebral artery occlusion [None]
  - Vertebral artery stenosis [None]
  - Cerebral haematoma [None]

NARRATIVE: CASE EVENT DATE: 20221106
